FAERS Safety Report 17863346 (Version 1)
Quarter: 2020Q2

REPORT INFORMATION
  Report Type: Spontaneous
  Country: US (occurrence: US)
  Receive Date: 20200604
  Receipt Date: 20200604
  Transmission Date: 20200714
  Serious: No
  Sender: FDA-Public Use
  Company Number: US-TEVA-2020-US-1244854

PATIENT
  Age: 82 Year
  Sex: Female
  Weight: 58.96 kg

DRUGS (1)
  1. FEXOFENADINE [Suspect]
     Active Substance: FEXOFENADINE HYDROCHLORIDE
     Indication: SEASONAL ALLERGY
     Dosage: FEXOFENADINE 180 MG 571 (FEXOFENADINE) TABLET {LOT # 6DR0196 (43F474); EXP.DT. DEC-2017}
     Route: 048
     Dates: start: 20200526, end: 20200527

REACTIONS (4)
  - Expired product administered [Unknown]
  - Blood pressure fluctuation [Unknown]
  - Product administered to patient of inappropriate age [Unknown]
  - Dizziness [Unknown]

NARRATIVE: CASE EVENT DATE: 20200526
